FAERS Safety Report 8761957 (Version 6)
Quarter: 2013Q2

REPORT INFORMATION
  Report Type: Spontaneous
  Country: US (occurrence: US)
  Receive Date: 20120830
  Receipt Date: 20130610
  Transmission Date: 20140414
  Serious: Yes (Hospitalization, Disabling, Other)
  Sender: FDA-Public Use
  Company Number: US-009507513-1203USA01078

PATIENT
  Sex: Female
  Weight: 74.38 kg

DRUGS (16)
  1. FOSAMAX [Suspect]
     Indication: OSTEOPOROSIS
     Dosage: 70 MG, UNK
     Route: 048
     Dates: start: 2006
  2. FOSAMAX [Suspect]
     Indication: OSTEOPENIA
  3. FOSAMAX [Suspect]
     Indication: OSTEOPOROSIS
     Dosage: 70 MG, UNK
     Route: 048
     Dates: start: 20080310
  4. FOSAMAX [Suspect]
     Indication: OSTEOPENIA
  5. FOSAMAX PLUS D [Suspect]
     Indication: OSTEOPOROSIS
     Dosage: 70 MG, UNK
     Route: 048
     Dates: start: 20070730
  6. FOSAMAX PLUS D [Suspect]
     Indication: OSTEOPENIA
  7. ZALAIN [Concomitant]
     Route: 048
  8. ZOLOFT [Concomitant]
     Dosage: 100 MG, QD
     Route: 048
     Dates: start: 200402
  9. CATAPRES [Concomitant]
     Indication: HOT FLUSH
     Dosage: 0.1 MG, UNK
     Route: 048
     Dates: start: 200402
  10. FLONASE [Concomitant]
     Indication: HYPERSENSITIVITY
     Dosage: UNK, PRN
     Route: 048
     Dates: start: 200408
  11. ZANTAC [Concomitant]
     Indication: PEPTIC ULCER
     Dosage: 300 MG, UNK
  12. ALEVE [Concomitant]
     Indication: MIGRAINE
  13. TOPAMAX [Concomitant]
     Indication: MIGRAINE
     Dosage: 50 MG, HS
  14. ESTROGENS (UNSPECIFIED) [Concomitant]
     Indication: OESTROGEN REPLACEMENT THERAPY
     Dosage: UNK
     Dates: start: 2004, end: 2009
  15. ESTROGENS (UNSPECIFIED) [Concomitant]
     Indication: ANOVULATORY CYCLE
  16. AROMASIN [Concomitant]
     Indication: BREAST CANCER
     Dosage: UNK
     Dates: start: 2006, end: 200912

REACTIONS (37)
  - Femur fracture [Not Recovered/Not Resolved]
  - Intramedullary rod insertion [Not Recovered/Not Resolved]
  - Female sterilisation [Unknown]
  - Bladder repair [Unknown]
  - Hernia repair [Unknown]
  - Low turnover osteopathy [Unknown]
  - Restless legs syndrome [Not Recovered/Not Resolved]
  - Gastrooesophageal reflux disease [Not Recovered/Not Resolved]
  - Treatment failure [Unknown]
  - Inguinal hernia [Unknown]
  - Foot fracture [Unknown]
  - Adverse event [Unknown]
  - Bursitis [Unknown]
  - Tendon disorder [Unknown]
  - Bursitis [Unknown]
  - Perineurial cyst [Unknown]
  - Large intestine polyp [Unknown]
  - Nephrolithiasis [Unknown]
  - Medical device complication [Unknown]
  - Inguinal hernia [Unknown]
  - Intervertebral disc degeneration [Unknown]
  - Cystocele [Unknown]
  - Hypertension [Unknown]
  - Hernia repair [Unknown]
  - Leiomyoma [Unknown]
  - Osteoarthritis [Unknown]
  - Tendon disorder [Unknown]
  - Chondropathy [Not Recovered/Not Resolved]
  - Periostitis [Unknown]
  - Medical device complication [Unknown]
  - Pain [Unknown]
  - Pain in extremity [Unknown]
  - Back pain [Unknown]
  - Headache [Unknown]
  - Drug ineffective [Unknown]
  - Local swelling [Unknown]
  - Pain in extremity [Unknown]
